FAERS Safety Report 12117746 (Version 7)
Quarter: 2017Q2

REPORT INFORMATION
  Report Type: Spontaneous
  Country: US (occurrence: US)
  Receive Date: 20160226
  Receipt Date: 20170412
  Transmission Date: 20170829
  Serious: Yes (Other)
  Sender: FDA-Public Use
  Company Number: US-PFIZER INC-2016102517

PATIENT
  Age: 64 Year
  Sex: Female

DRUGS (2)
  1. IBRANCE [Suspect]
     Active Substance: PALBOCICLIB
     Indication: BREAST CANCER METASTATIC
     Dosage: 125 MG, UNK
     Route: 048
     Dates: start: 20151120, end: 201612
  2. LETROZOLE. [Suspect]
     Active Substance: LETROZOLE
     Indication: BREAST CANCER METASTATIC
     Dosage: UNK
     Dates: start: 20151120

REACTIONS (11)
  - Gastric disorder [Unknown]
  - Neoplasm progression [Unknown]
  - Postmenopausal haemorrhage [Unknown]
  - Pruritus [Not Recovered/Not Resolved]
  - Rash [Recovered/Resolved]
  - Fatigue [Unknown]
  - Urinary tract infection [Unknown]
  - Ulcer [Recovered/Resolved]
  - Skin disorder [Not Recovered/Not Resolved]
  - Blister [Not Recovered/Not Resolved]
  - White blood cell count decreased [Unknown]
